FAERS Safety Report 8240439-X (Version None)
Quarter: 2012Q1

REPORT INFORMATION
  Report Type: 
  Country: None (occurrence: None)
  Receive Date: 20120328
  Receipt Date: 20120319
  Transmission Date: 20120608
  Serious: Yes (Hospitalization)
  Sender: FDA-Public Use
  Company Number: US-NOVOPROD-324231

PATIENT
  Age: 51 Year
  Sex: Female
  Weight: 136.96 kg

DRUGS (3)
  1. NOVOLOG [Concomitant]
     Indication: TYPE 2 DIABETES MELLITUS
  2. VICTOZA [Suspect]
     Indication: TYPE 2 DIABETES MELLITUS
     Dosage: 1.8 MG, QD
     Route: 058
     Dates: start: 20110101, end: 20110224
  3. LANTUS [Concomitant]
     Indication: TYPE 2 DIABETES MELLITUS
     Dosage: 40 U, QD

REACTIONS (1)
  - PANCREATITIS [None]
